FAERS Safety Report 4499949-3 (Version None)
Quarter: 2004Q4

REPORT INFORMATION
  Report Type: 
  Country: None (occurrence: None)
  Receive Date: 20041112
  Receipt Date: 20030605
  Transmission Date: 20050328
  Serious: Yes (Other)
  Sender: FDA-Public Use
  Company Number: US-MERCK-0306USA00927

PATIENT
  Age: 38 Year
  Sex: Female
  Weight: 159 kg

DRUGS (10)
  1. VIOXX [Suspect]
     Indication: INFLAMMATION
     Route: 048
     Dates: start: 20010315, end: 20021001
  2. VIOXX [Suspect]
     Route: 048
     Dates: start: 20021022
  3. NORVASC [Concomitant]
     Route: 065
  4. CELEBREX [Concomitant]
     Route: 065
  5. CLONIDINE [Concomitant]
     Route: 065
  6. DEMADEX [Concomitant]
     Route: 065
  7. DIGITEK [Concomitant]
     Route: 065
  8. POTASSIUM (UNSPECIFIED) [Concomitant]
     Route: 065
  9. ASPIRIN [Concomitant]
     Route: 065
  10. ACCUPRIL [Concomitant]
     Route: 065

REACTIONS (7)
  - ADVERSE EVENT [None]
  - ANGINA PECTORIS [None]
  - BACK PAIN [None]
  - BLOOD PRESSURE INCREASED [None]
  - CONVULSION [None]
  - MUSCLE SPASMS [None]
  - PAIN IN EXTREMITY [None]
